FAERS Safety Report 15433477 (Version 1)
Quarter: 2018Q3

REPORT INFORMATION
  Report Type: Spontaneous
  Country: MX (occurrence: MX)
  Receive Date: 20180921
  Receipt Date: 20180921
  Transmission Date: 20181010
  Serious: Yes (Disabling)
  Sender: FDA-Public Use
  Company Number: None

PATIENT
  Age: 58 Year
  Sex: Female
  Weight: 70 kg

DRUGS (1)
  1. DULOXETINA [Suspect]
     Active Substance: DULOXETINE
     Indication: FIBROMYALGIA
     Dosage: ?          QUANTITY:1 DF DOSAGE FORM;?
     Route: 048
     Dates: start: 20180913, end: 20180914

REACTIONS (10)
  - Muscle spasms [None]
  - Headache [None]
  - Confusional state [None]
  - Photophobia [None]
  - Generalised anxiety disorder [None]
  - Tremor [None]
  - Asthenia [None]
  - Dry mouth [None]
  - Eye irritation [None]
  - Depression [None]

NARRATIVE: CASE EVENT DATE: 20180914
